FAERS Safety Report 8852973 (Version 1)
Quarter: 2012Q4

REPORT INFORMATION
  Report Type: 
  Country: CH (occurrence: CH)
  Receive Date: 20121022
  Receipt Date: 20121022
  Transmission Date: 20130627
  Serious: Yes (Hospitalization, Disabling)
  Sender: FDA-Public Use
  Company Number: PHHY2012CH093523

PATIENT
  Age: 89 Year
  Sex: Female

DRUGS (2)
  1. CEFEPIME [Suspect]
     Indication: DIVERTICULUM
     Dosage: 1 g, UNK
     Route: 042
     Dates: start: 20120711, end: 20120718
  2. METRONIDAZOL [Suspect]
     Indication: DIVERTICULUM
     Dosage: 500 mg, UNK
     Route: 042
     Dates: start: 20120711, end: 20120718

REACTIONS (5)
  - Delirium [Recovered/Resolved]
  - Fatigue [Recovered/Resolved]
  - Somnolence [Recovered/Resolved]
  - Disorientation [Recovered/Resolved]
  - Myoclonus [Recovered/Resolved]
